FAERS Safety Report 4557444-7 (Version None)
Quarter: 2005Q1

REPORT INFORMATION
  Report Type: 
  Country: None (occurrence: None)
  Receive Date: 20050103
  Receipt Date: 20041021
  Transmission Date: 20050727
  Serious: Yes (Other)
  Sender: FDA-Public Use
  Company Number: 2004UW18991

PATIENT
  Age: 65 Year
  Sex: Female
  Weight: 137.4399 kg

DRUGS (13)
  1. CRESTOR [Suspect]
     Indication: BLOOD CHOLESTEROL INCREASED
     Dosage: 10 MG DAILY PO
     Route: 048
     Dates: start: 20040202
  2. FUROSEMIDE [Concomitant]
  3. K-DUR 10 [Concomitant]
  4. COMBIVENT [Concomitant]
  5. SYNTHROID [Concomitant]
  6. AMARYL [Concomitant]
  7. PLAVIX [Concomitant]
  8. METFORMIN HCL [Concomitant]
  9. LANTUS [Concomitant]
  10. BENICAR [Concomitant]
  11. AZMACORT [Concomitant]
  12. FLONASE [Concomitant]
  13. KEFLEX [Concomitant]

REACTIONS (11)
  - ABDOMINAL DISTENSION [None]
  - BLOOD CHOLESTEROL INCREASED [None]
  - BLOOD TRIGLYCERIDES INCREASED [None]
  - CONSTIPATION [None]
  - DYSPNOEA [None]
  - FATIGUE [None]
  - HEADACHE [None]
  - HIGH DENSITY LIPOPROTEIN DECREASED [None]
  - LOW DENSITY LIPOPROTEIN INCREASED [None]
  - NAUSEA [None]
  - OEDEMA PERIPHERAL [None]
